FAERS Safety Report 9809050 (Version 1)
Quarter: 2014Q1

REPORT INFORMATION
  Report Type: Spontaneous
  Country: US (occurrence: US)
  Receive Date: 20140110
  Receipt Date: 20140110
  Transmission Date: 20141002
  Serious: Yes (Hospitalization)
  Sender: FDA-Public Use
  Company Number: PHEH2014US000822

PATIENT
  Age: 81 Year
  Sex: Female

DRUGS (3)
  1. RECLAST [Suspect]
     Dosage: UNK UKN, UNK
     Route: 042
  2. RECLAST [Suspect]
     Dosage: UNK UKN, UNK
     Route: 042
  3. CALCIUM [Concomitant]
     Dosage: UNK UKN, UNK

REACTIONS (3)
  - Sleep disorder [Unknown]
  - Road traffic accident [Unknown]
  - Cervical vertebral fracture [Recovering/Resolving]
